FAERS Safety Report 8856531 (Version 1)
Quarter: 2012Q4

REPORT INFORMATION
  Report Type: Spontaneous
  Country: US (occurrence: None)
  Receive Date: 20121018
  Receipt Date: 20121018
  Transmission Date: 20130627
  Serious: Yes (Other)
  Sender: FDA-Public Use
  Company Number: ACO_32407_2012

PATIENT
  Age: 44 Year
  Sex: Female
  Weight: 59 kg

DRUGS (5)
  1. AMPYRA [Suspect]
     Indication: MOBILITY DECREASED
     Dosage: 1 DF, Q 12 hrs, Oral
     Route: 048
     Dates: start: 2012, end: 201209
  2. AMPYRA [Suspect]
     Indication: MULTIPLE SCLEROSIS
     Dosage: 1 DF, Q 12 hrs, Oral
     Route: 048
     Dates: start: 2012, end: 201209
  3. TYSABRI [Concomitant]
  4. PLAVIX (CLOPIDOGREL BISULFATE) [Concomitant]
  5. MACROBID (NITROFURANTOIN) [Concomitant]

REACTIONS (5)
  - Fatigue [None]
  - Aphonia [None]
  - Movement disorder [None]
  - Cognitive disorder [None]
  - Asthenia [None]
